FAERS Safety Report 9504801 (Version 3)
Quarter: 2013Q4

REPORT INFORMATION
  Report Type: Report from Study
  Country: US (occurrence: US)
  Receive Date: 20130906
  Receipt Date: 20131010
  Transmission Date: 20140711
  Serious: Yes (Hospitalization)
  Sender: FDA-Public Use
  Company Number: US-AMGEN-USACT2013062523

PATIENT
  Age: 37 Year
  Sex: Female
  Weight: 68.9 kg

DRUGS (3)
  1. PANITUMUMAB [Suspect]
     Indication: NON-SMALL CELL LUNG CANCER
     Dosage: 180 MG, UNK
     Route: 065
     Dates: start: 20130708
  2. TAXOL [Concomitant]
     Indication: NON-SMALL CELL LUNG CANCER
     Dosage: 90 MG, UNK
     Dates: start: 20130708, end: 20130812
  3. CARBOPLATIN [Concomitant]
     Indication: NON-SMALL CELL LUNG CANCER
     Dosage: 300 MG, UNK
     Dates: start: 20130708, end: 20130812

REACTIONS (5)
  - Oesophageal pain [Recovering/Resolving]
  - Dysphagia [Recovering/Resolving]
  - Oesophagitis [Recovering/Resolving]
  - Dehydration [Not Recovered/Not Resolved]
  - Decreased appetite [Recovering/Resolving]
